FAERS Safety Report 14416825 (Version 1)
Quarter: 2018Q1

REPORT INFORMATION
  Report Type: Spontaneous
  Country: US (occurrence: US)
  Receive Date: 20180119
  Receipt Date: 20180119
  Transmission Date: 20180509
  Serious: Yes (Death, Hospitalization)
  Sender: FDA-Public Use
  Company Number: None

PATIENT
  Age: 61 Year
  Sex: Female

DRUGS (12)
  1. ACETAMINOPHEN. [Concomitant]
     Active Substance: ACETAMINOPHEN
  2. HYDROMORPHONE [Concomitant]
     Active Substance: HYDROMORPHONE
  3. HEPARIN [Concomitant]
     Active Substance: HEPARIN SODIUM
  4. LIDOCAINE. [Concomitant]
     Active Substance: LIDOCAINE
  5. ONDANSETRON [Concomitant]
     Active Substance: ONDANSETRON
  6. GABAPENTIN. [Concomitant]
     Active Substance: GABAPENTIN
  7. BUPIVACAINE. [Concomitant]
     Active Substance: BUPIVACAINE
  8. PROPOFOL. [Concomitant]
     Active Substance: PROPOFOL
  9. VECURONIUM [Concomitant]
     Active Substance: VECURONIUM BROMIDE
  10. ENOXAPARIN [Suspect]
     Active Substance: ENOXAPARIN
     Indication: DEEP VEIN THROMBOSIS
     Route: 058
  11. CLINDAMYCIN. [Concomitant]
     Active Substance: CLINDAMYCIN
  12. FENTANYL. [Concomitant]
     Active Substance: FENTANYL

REACTIONS (7)
  - Disorientation [None]
  - Respiratory failure [None]
  - Pulmonary embolism [None]
  - Pulmonary infarction [None]
  - Aspiration [None]
  - Confusional state [None]
  - Cerebral infarction [None]

NARRATIVE: CASE EVENT DATE: 20170910
